FAERS Safety Report 8187405-0 (Version None)
Quarter: 2012Q1

REPORT INFORMATION
  Report Type: 
  Country: None (occurrence: None)
  Receive Date: 20120302
  Receipt Date: 20120220
  Transmission Date: 20120608
  Serious: Yes (Death)
  Sender: FDA-Public Use
  Company Number: 2012SP009580

PATIENT
  Age: 40 Year
  Sex: Female

DRUGS (2)
  1. ASPIRIN [Concomitant]
  2. INTRON A [Suspect]
     Indication: MALIGNANT MELANOMA

REACTIONS (2)
  - MYOCARDIAL INFARCTION [None]
  - PHLEBITIS [None]
